FAERS Safety Report 15460122 (Version 2)
Quarter: 2018Q4

REPORT INFORMATION
  Report Type: Spontaneous
  Country: US (occurrence: US)
  Receive Date: 20181003
  Receipt Date: 20181010
  Transmission Date: 20190204
  Serious: No
  Sender: FDA-Public Use
  Company Number: US-PFIZER INC-2018397162

PATIENT
  Age: 71 Year
  Sex: Female
  Weight: 118.3 kg

DRUGS (1)
  1. GABAPENTIN. [Suspect]
     Active Substance: GABAPENTIN
     Indication: ARTHRITIS
     Dosage: 100 MG, AS NEEDED (1-4 CAPSULES DAILY)
     Route: 048
     Dates: end: 201809

REACTIONS (8)
  - Memory impairment [Not Recovered/Not Resolved]
  - Condition aggravated [Not Recovered/Not Resolved]
  - Intentional dose omission [Unknown]
  - Tremor [Unknown]
  - Fall [Recovering/Resolving]
  - Nervousness [Unknown]
  - Product use in unapproved indication [Unknown]
  - Anger [Recovered/Resolved with Sequelae]

NARRATIVE: CASE EVENT DATE: 2017
